FAERS Safety Report 9475785 (Version 2)
Quarter: 2013Q3

REPORT INFORMATION
  Report Type: Spontaneous
  Country: US (occurrence: None)
  Receive Date: 20130821
  Receipt Date: 20130910
  Transmission Date: 20140515
  Serious: No
  Sender: FDA-Public Use
  Company Number: GAM-119-13-US

PATIENT
  Sex: Male

DRUGS (1)
  1. OCTAGAM (HUMAN NORMAL IMMUNOGLOBULIN FOR INTRAVENOUS) [Suspect]
     Indication: IMMUNODEFICIENCY COMMON VARIABLE
     Dates: start: 2012, end: 2012

REACTIONS (2)
  - Immunodeficiency common variable [None]
  - Condition aggravated [None]
